FAERS Safety Report 5820622-0 (Version None)
Quarter: 2008Q3

REPORT INFORMATION
  Report Type: 
  Country: None (occurrence: None)
  Receive Date: 20080724
  Receipt Date: 20071211
  Transmission Date: 20090109
  Serious: No
  Sender: FDA-Public Use
  Company Number: A0698360A

PATIENT
  Age: 56 Year
  Sex: Female

DRUGS (5)
  1. AVANDIA [Suspect]
     Dosage: 8MG PER DAY
     Route: 048
     Dates: end: 20071201
  2. METFORMIN [Concomitant]
     Dosage: 500MG UNKNOWN
  3. GLYBURIDE [Concomitant]
     Dosage: 5MG UNKNOWN
  4. LISINOPRIL AND HYDROCHLOROTHIAZIDE [Concomitant]
  5. PRAVASTATIN [Concomitant]
     Dosage: 40MG UNKNOWN

REACTIONS (2)
  - DYSSTASIA [None]
  - PAIN IN EXTREMITY [None]
